FAERS Safety Report 11816562 (Version 2)
Quarter: 2016Q2

REPORT INFORMATION
  Report Type: Report from Study
  Country: BE (occurrence: BE)
  Receive Date: 20151210
  Receipt Date: 20160608
  Transmission Date: 20160815
  Serious: Yes (Other)
  Sender: FDA-Public Use
  Company Number: BE-ROCHE-1674604

PATIENT
  Age: 75 Year
  Sex: Male

DRUGS (6)
  1. MEDROL [Suspect]
     Active Substance: METHYLPREDNISOLONE
     Indication: TUBULOINTERSTITIAL NEPHRITIS
     Route: 065
  2. CELLCEPT [Suspect]
     Active Substance: MYCOPHENOLATE MOFETIL\MYCOPHENOLATE MOFETIL HYDROCHLORIDE
     Indication: TUBULOINTERSTITIAL NEPHRITIS
     Route: 065
     Dates: start: 20151102, end: 20151107
  3. LEDERTREXATE [Suspect]
     Active Substance: METHOTREXATE
     Indication: TUBULOINTERSTITIAL NEPHRITIS
     Route: 065
  4. CELLCEPT [Suspect]
     Active Substance: MYCOPHENOLATE MOFETIL\MYCOPHENOLATE MOFETIL HYDROCHLORIDE
     Indication: AORTITIS
  5. MEDROL [Suspect]
     Active Substance: METHYLPREDNISOLONE
     Indication: AORTITIS
  6. LEDERTREXATE [Suspect]
     Active Substance: METHOTREXATE
     Indication: AORTITIS

REACTIONS (4)
  - Food intolerance [Unknown]
  - Nausea [Unknown]
  - Malaise [Unknown]
  - Off label use [Unknown]

NARRATIVE: CASE EVENT DATE: 20151102
